FAERS Safety Report 10278879 (Version 1)
Quarter: 2014Q3

REPORT INFORMATION
  Report Type: Spontaneous
  Country: KR (occurrence: KR)
  Receive Date: 20140706
  Receipt Date: 20140706
  Transmission Date: 20150326
  Serious: Yes (Death, Other)
  Sender: FDA-Public Use
  Company Number: PHHY2014KR082796

PATIENT
  Age: 14 Year
  Sex: Male

DRUGS (11)
  1. SULFAMETHOXAZOLE AND TRIMETHOPRIM [Concomitant]
     Active Substance: SULFAMETHOXAZOLE\TRIMETHOPRIM
     Dosage: 150 MG/M2, QD
     Route: 048
  2. ANTITHYMOCYTE IMMUNOGLOBULIN [Concomitant]
     Active Substance: THYMOCYTE IMMUNE GLOBULIN NOS
  3. MICAFUNGIN [Concomitant]
     Active Substance: MICAFUNGIN
     Dosage: 1 MG/KG, UNK
     Route: 051
  4. CYCLOPHOSPHAMIDE. [Concomitant]
     Active Substance: CYCLOPHOSPHAMIDE
     Dosage: 25 MG/KG, QD
  5. ACYCLOVIR. [Concomitant]
     Active Substance: ACYCLOVIR
     Dosage: 5 MG/KG, QID
     Route: 048
  6. ANTIFUNGALS [Concomitant]
     Active Substance: UNSPECIFIED INGREDIENT
  7. FLUDARABINE [Concomitant]
     Active Substance: FLUDARABINE PHOSPHATE
     Dosage: 30 MG/M2, QD
  8. FLUCONAZOLE. [Concomitant]
     Active Substance: FLUCONAZOLE
     Dosage: 3 MG/KG, QD
     Route: 048
  9. RITUXIMAB [Concomitant]
     Active Substance: RITUXIMAB
  10. CICLOSPORIN [Suspect]
     Active Substance: CYCLOSPORINE
     Indication: GRAFT VERSUS HOST DISEASE
  11. IMMUNOGLOBULIN I.V [Concomitant]
     Active Substance: HUMAN IMMUNOGLOBULIN G
     Dosage: 500 MG/KG, UNK

REACTIONS (5)
  - Lymphadenopathy [Unknown]
  - Graft versus host disease [Unknown]
  - Death [Fatal]
  - Cytomegalovirus infection [Unknown]
  - Pyrexia [Unknown]
